FAERS Safety Report 6082695-2 (Version None)
Quarter: 2009Q1

REPORT INFORMATION
  Report Type: 
  Country: None (occurrence: None)
  Receive Date: 20090218
  Receipt Date: 20090216
  Transmission Date: 20090719
  Serious: Yes (Death, Other)
  Sender: FDA-Public Use
  Company Number: PHHY2009GB05409

PATIENT
  Sex: Male

DRUGS (1)
  1. RITALIN [Suspect]
     Indication: DISTURBANCE IN ATTENTION

REACTIONS (16)
  - ALCOHOL USE [None]
  - BIPOLAR I DISORDER [None]
  - COMPLETED SUICIDE [None]
  - DEPRESSION [None]
  - DRUG ABUSE [None]
  - DRUG DEPENDENCE [None]
  - ENURESIS [None]
  - HALLUCINATION [None]
  - INTENTIONAL DRUG MISUSE [None]
  - MANIA [None]
  - MOOD SWINGS [None]
  - PARKINSONISM [None]
  - PSYCHOTIC DISORDER [None]
  - SOMNOLENCE [None]
  - WEIGHT INCREASED [None]
  - WRONG TECHNIQUE IN DRUG USAGE PROCESS [None]
